FAERS Safety Report 8738517 (Version 2)
Quarter: 2012Q4

REPORT INFORMATION
  Report Type: 
  Country: CA (occurrence: CA)
  Receive Date: 20120823
  Receipt Date: 20121011
  Transmission Date: 20130627
  Serious: Yes (Other)
  Sender: FDA-Public Use
  Company Number: CA-BAYER-2012-086035

PATIENT
  Age: 42 Year
  Sex: Male
  Weight: 120 kg

DRUGS (1)
  1. CIPRO XR [Suspect]
     Indication: PROSTATITIS
     Dosage: 500 mg, BID
     Route: 048
     Dates: start: 20010501, end: 20010907

REACTIONS (5)
  - Narcolepsy [Unknown]
  - Nerve injury [Unknown]
  - Pain in extremity [Unknown]
  - Pelvic pain [Unknown]
  - Tendon pain [Unknown]
